FAERS Safety Report 7628868-6 (Version None)
Quarter: 2011Q3

REPORT INFORMATION
  Report Type: 
  Country: None (occurrence: None)
  Receive Date: 20110722
  Receipt Date: 20110712
  Transmission Date: 20111222
  Serious: Yes (Hospitalization)
  Sender: FDA-Public Use
  Company Number: FR-BRISTOL-MYERS SQUIBB COMPANY-15746332

PATIENT
  Age: 66 Year
  Sex: Male

DRUGS (1)
  1. MITOMYCIN [Suspect]
     Indication: BLADDER NEOPLASM
     Dosage: INJECTION
     Route: 043
     Dates: start: 20090101, end: 20090101

REACTIONS (4)
  - URINARY RETENTION [None]
  - BLADDER NECROSIS [None]
  - PELVIC PAIN [None]
  - BLADDER PERFORATION [None]
